FAERS Safety Report 21179208 (Version 3)
Quarter: 2022Q3

REPORT INFORMATION
  Report Type: Spontaneous
  Country: BR (occurrence: BR)
  Receive Date: 20220805
  Receipt Date: 20220812
  Transmission Date: 20221026
  Serious: Yes (Other)
  Sender: FDA-Public Use
  Company Number: BR-BAXTER-2022BAX016390

PATIENT
  Age: 34 Year
  Sex: Female

DRUGS (3)
  1. IRON [Suspect]
     Active Substance: IRON
     Indication: Anaemia prophylaxis
     Dosage: 400 MG DILUTED IN 500ML OF 0,9% SALINE SOLUTION, ADMINISTERED VIA ENDOVENOUS ROUTE
     Route: 042
     Dates: start: 20220614, end: 20220614
  2. SODIUM CHLORIDE [Suspect]
     Active Substance: SODIUM CHLORIDE
     Indication: Medication dilution
     Dosage: ENDOVENOUS, 400 MG DILUTED IN 500ML OF 0,9% SALINE SOLUTION
     Route: 042
     Dates: start: 20220614, end: 20220614
  3. SERTRALINE [Concomitant]
     Active Substance: SERTRALINE HYDROCHLORIDE
     Dosage: 75 MG, 1 TABLET PER DAY
     Route: 048

REACTIONS (3)
  - Skin plaque [Recovered/Resolved]
  - Urticaria [Recovered/Resolved]
  - Off label use [Unknown]

NARRATIVE: CASE EVENT DATE: 20220614
